FAERS Safety Report 21707325 (Version 1)
Quarter: 2022Q4

REPORT INFORMATION
  Report Type: Spontaneous
  Country: CN (occurrence: CN)
  Receive Date: 20221209
  Receipt Date: 20221209
  Transmission Date: 20230112
  Serious: Yes (Life-Threatening, Hospitalization, Disabling, Other)
  Sender: FDA-Public Use
  Company Number: CN-PFIZER INC-PV202200119013

PATIENT
  Age: 67 Year
  Sex: Male
  Weight: 53 kg

DRUGS (1)
  1. CYTARABINE [Suspect]
     Active Substance: CYTARABINE
     Indication: Myelodysplastic syndrome
     Dosage: 20 MG, 2X/DAY
     Route: 058
     Dates: start: 20220412, end: 20220417

REACTIONS (2)
  - Myelosuppression [Recovering/Resolving]
  - Gingival discomfort [Unknown]

NARRATIVE: CASE EVENT DATE: 20220424
